FAERS Safety Report 13770400 (Version 1)
Quarter: 2017Q3

REPORT INFORMATION
  Report Type: Spontaneous
  Country: US (occurrence: US)
  Receive Date: 20170719
  Receipt Date: 20170719
  Transmission Date: 20171127
  Serious: Yes (Hospitalization)
  Sender: FDA-Public Use
  Company Number: US-VIFOR (INTERNATIONAL) INC.-VIT-2016-08243

PATIENT
  Age: 50 Year
  Sex: Male
  Weight: 56.5 kg

DRUGS (13)
  1. LANTUS [Concomitant]
     Active Substance: INSULIN GLARGINE
  2. LOSARTAN. [Concomitant]
     Active Substance: LOSARTAN
  3. COLECALCIFEROL [Concomitant]
     Active Substance: CHOLECALCIFEROL
  4. ASCORBIC ACID. [Concomitant]
     Active Substance: ASCORBIC ACID
  5. CHELATED CALCIUM [Concomitant]
  6. RENA-VITE [Concomitant]
     Active Substance: ASCORBIC ACID\BIOTIN\CALCIUM PANTOTHENATE\CYANOCOBALAMIN\FOLIC ACID\NIACINAMIDE\PYRIDOXINE HYDROCHLORIDE\RIBOFLAVIN\THIAMINE MONONITRATE
  7. VELTASSA [Suspect]
     Active Substance: PATIROMER
     Indication: HYPERKALAEMIA
     Route: 048
     Dates: start: 20160629, end: 20161027
  8. ACETYLSALICYLIC ACID [Concomitant]
     Active Substance: ASPIRIN
  9. HUMALOG [Concomitant]
     Active Substance: INSULIN LISPRO
  10. AMLODIPINE [Concomitant]
     Active Substance: AMLODIPINE BESYLATE
  11. CILOSTAZOL. [Concomitant]
     Active Substance: CILOSTAZOL
  12. METOPROLOL. [Concomitant]
     Active Substance: METOPROLOL
  13. CALTRATE [Concomitant]
     Active Substance: CALCIUM CARBONATE

REACTIONS (3)
  - Infection [Unknown]
  - Haematuria [Unknown]
  - Cerebral thrombosis [Unknown]

NARRATIVE: CASE EVENT DATE: 2016
